FAERS Safety Report 17329324 (Version 1)
Quarter: 2020Q1

REPORT INFORMATION
  Report Type: Spontaneous
  Country: US (occurrence: US)
  Receive Date: 20200127
  Receipt Date: 20200127
  Transmission Date: 20200409
  Serious: Yes (Other)
  Sender: FDA-Public Use
  Company Number: None

PATIENT
  Age: 71 Year
  Sex: Male
  Weight: 62.7 kg

DRUGS (10)
  1. LORATADINE 10MG DAILY [Concomitant]
  2. METFORMIN 1000MG TWICE DAILY [Concomitant]
  3. ASPIRIN 81 MG [Concomitant]
     Active Substance: ASPIRIN
  4. FINASTERIDE 5MG DAILY [Concomitant]
  5. SITAGLIPTIN 50MG DAILY [Concomitant]
  6. PRAVASTATIN 10MG DAILY [Concomitant]
  7. BENAZEPRIL 20MG DAILY [Concomitant]
  8. TAMSULOSIN 0.4MG DAILY [Concomitant]
  9. EPCLUSA [Suspect]
     Active Substance: SOFOSBUVIR\VELPATASVIR
     Indication: CHRONIC HEPATITIS C
     Route: 048
     Dates: start: 20191107
  10. GLIPIZIDE 10MG TWICE DAILY [Concomitant]

REACTIONS (2)
  - Drug interaction [None]
  - Hypertension [None]

NARRATIVE: CASE EVENT DATE: 20191230
